FAERS Safety Report 15327055 (Version 1)
Quarter: 2018Q3

REPORT INFORMATION
  Report Type: Spontaneous
  Country: US (occurrence: US)
  Receive Date: 20180823
  Receipt Date: 20180823
  Transmission Date: 20181010
  Serious: Yes (Other)
  Sender: FDA-Public Use
  Company Number: None

PATIENT
  Age: 69 Year
  Sex: Male
  Weight: 79.29 kg

DRUGS (9)
  1. HYDROCHLOROTHIAZIDE 25MG TAB [Concomitant]
  2. OMBITASVIR/PARITAPREVIR/RITONAVIR 12.5/75/50MG + DASABUVIR 250MG [Suspect]
     Active Substance: DASABUVIR\OMBITASVIR\PARITAPREVIR\RITONAVIR
  3. FLUOCINONIDE 0.05% CREAM [Concomitant]
     Active Substance: FLUOCINONIDE
  4. PERMETHRIN 5% CREAM [Concomitant]
  5. BENAZEPRIL HCL 40MG TAB [Concomitant]
  6. TRAMADOL HCL 50MG TAB [Concomitant]
     Active Substance: TRAMADOL HYDROCHLORIDE
  7. GABAPENTIN 600MG TAB [Concomitant]
  8. TAMSULOSIN HCL 0.4MG CAP [Concomitant]
  9. DOCUSATE NA 100MG CAP [Concomitant]

REACTIONS (1)
  - Hepatocellular carcinoma [None]
